FAERS Safety Report 12972233 (Version 1)
Quarter: 2016Q4

REPORT INFORMATION
  Report Type: Spontaneous
  Country: US (occurrence: US)
  Receive Date: 20161124
  Receipt Date: 20161124
  Transmission Date: 20170207
  Serious: Yes (Other)
  Sender: FDA-Public Use
  Company Number: US-BAUSCH-BL-2016-026322

PATIENT
  Sex: Female

DRUGS (2)
  1. PAXIL [Concomitant]
     Active Substance: PAROXETINE HYDROCHLORIDE
     Indication: PRODUCT USED FOR UNKNOWN INDICATION
  2. XENAZINE [Suspect]
     Active Substance: TETRABENAZINE
     Indication: HUNTINGTON^S DISEASE
     Route: 048
     Dates: start: 20161020

REACTIONS (12)
  - Feeling abnormal [Unknown]
  - Social avoidant behaviour [Unknown]
  - Cognitive disorder [Unknown]
  - Disturbance in attention [Unknown]
  - Lethargy [Unknown]
  - Depressed mood [Unknown]
  - Asthenia [Unknown]
  - Balance disorder [Unknown]
  - Movement disorder [Unknown]
  - Drug administration error [Unknown]
  - Crying [Unknown]
  - Feeling of despair [Unknown]

NARRATIVE: CASE EVENT DATE: 2016
